FAERS Safety Report 9504155 (Version 6)
Quarter: 2014Q1

REPORT INFORMATION
  Report Type: Spontaneous
  Country: US (occurrence: US)
  Receive Date: 20130906
  Receipt Date: 20140210
  Transmission Date: 20141002
  Serious: Yes (Hospitalization, Other)
  Sender: FDA-Public Use
  Company Number: US-009507513-1109USA01757

PATIENT
  Sex: Female
  Weight: 77.98 kg

DRUGS (1)
  1. FOSAMAX [Suspect]
     Indication: OSTEOPENIA
     Dosage: 70 MG, UNK
     Route: 048
     Dates: start: 200404, end: 20100708

REACTIONS (26)
  - Femur fracture [Recovered/Resolved]
  - Intramedullary rod insertion [Unknown]
  - Intramedullary rod insertion [Unknown]
  - Carotid endarterectomy [Unknown]
  - Carotid endarterectomy [Unknown]
  - Pathological fracture [Recovered/Resolved]
  - Low turnover osteopathy [Unknown]
  - Tooth extraction [Unknown]
  - Hypertension [Unknown]
  - Fall [Unknown]
  - Meniscus injury [Unknown]
  - Intervertebral disc degeneration [Unknown]
  - Sciatica [Unknown]
  - Osteoarthritis [Unknown]
  - Spondylolisthesis [Unknown]
  - Scoliosis [Unknown]
  - Osteoporosis [Unknown]
  - Haemorrhagic anaemia [Unknown]
  - Urinary tract infection [Unknown]
  - Spinal osteoarthritis [Unknown]
  - Osteoarthritis [Unknown]
  - Hyperlipidaemia [Unknown]
  - Angiopathy [Unknown]
  - Osteoarthritis [Unknown]
  - Erythema [Unknown]
  - Constipation [Unknown]
